FAERS Safety Report 8135281-4 (Version None)
Quarter: 2012Q1

REPORT INFORMATION
  Report Type: 
  Country: None (occurrence: None)
  Receive Date: 20120214
  Receipt Date: 20120130
  Transmission Date: 20120608
  Serious: Yes (Hospitalization, Other)
  Sender: FDA-Public Use
  Company Number: DE-ROCHE-1030125

PATIENT
  Age: 66 Year
  Sex: Male
  Weight: 83 kg

DRUGS (7)
  1. LEUCOVORIN CALCIUM [Suspect]
     Indication: GASTRIC CANCER
     Route: 042
     Dates: start: 20120110
  2. ONDANSETRON HYDROCHLORIDE [Suspect]
     Indication: PROPHYLAXIS OF NAUSEA AND VOMITING
     Route: 042
     Dates: start: 20120110
  3. ASPIRIN [Concomitant]
  4. OXALIPLATIN [Suspect]
     Indication: GASTRIC CANCER
     Route: 042
     Dates: start: 20120110
  5. HERCEPTIN [Suspect]
     Indication: GASTRIC CANCER
     Route: 042
     Dates: start: 20120110
  6. FLUOROURACIL [Suspect]
     Indication: GASTRIC CANCER
     Route: 042
     Dates: start: 20120110, end: 20120111
  7. DEXAMETHASONE [Suspect]
     Indication: PROPHYLAXIS OF NAUSEA AND VOMITING
     Route: 042
     Dates: start: 20120110

REACTIONS (3)
  - PANCREATIC DUCT STENOSIS [None]
  - CHOLECYSTITIS [None]
  - BILE DUCT STENOSIS [None]
